FAERS Safety Report 4855535-4 (Version None)
Quarter: 2005Q4

REPORT INFORMATION
  Report Type: 
  Country: None (occurrence: None)
  Receive Date: 20051216
  Receipt Date: 20051205
  Transmission Date: 20060501
  Serious: Yes (Life-Threatening)
  Sender: FDA-Public Use
  Company Number: GB-BRISTOL-MYERS SQUIBB COMPANY-13209648

PATIENT
  Age: 61 Year
  Sex: Female

DRUGS (10)
  1. GLUCOPHAGE XR [Suspect]
     Indication: DIABETES MELLITUS
     Route: 048
     Dates: start: 20051001, end: 20051112
  2. ASPIRIN [Concomitant]
     Route: 048
  3. BENDROFLUAZIDE [Concomitant]
     Indication: HYPERTENSION
     Route: 048
  4. RAMIPRIL [Concomitant]
     Indication: DIABETES MELLITUS
     Route: 048
  5. GLIMEPIRIDE [Concomitant]
     Indication: DIABETES MELLITUS
     Route: 048
  6. ROSIGLITAZONE [Concomitant]
     Indication: DIABETES MELLITUS
     Route: 048
  7. SIMVASTATIN [Concomitant]
     Indication: BLOOD CHOLESTEROL INCREASED
     Route: 048
  8. ZOPICLONE [Concomitant]
     Indication: SLEEP DISORDER
     Route: 048
  9. SELENIUM SULFIDE [Concomitant]
     Route: 048
  10. IMODIUM [Concomitant]
     Route: 048

REACTIONS (4)
  - CONFUSIONAL STATE [None]
  - HEADACHE [None]
  - LACTIC ACIDOSIS [None]
  - VOMITING [None]
